FAERS Safety Report 10563468 (Version 2)
Quarter: 2015Q1

REPORT INFORMATION
  Report Type: Spontaneous
  Country: IT (occurrence: IT)
  Receive Date: 20141104
  Receipt Date: 20150204
  Transmission Date: 20150720
  Serious: Yes (Hospitalization)
  Sender: FDA-Public Use
  Company Number: IT-ROCHE-1485609

PATIENT
  Age: 74 Year
  Sex: Female
  Weight: 51 kg

DRUGS (5)
  1. IRINOTECAN [Concomitant]
     Active Substance: IRINOTECAN
     Indication: COLON CANCER RECURRENT
     Dosage: 20 MG/ML CONCENTRATE FOR SOLUTION FOR INFUSION
     Route: 042
     Dates: start: 20140716, end: 20141001
  2. AVASTIN [Suspect]
     Active Substance: BEVACIZUMAB
     Indication: COLON CANCER RECURRENT
     Dosage: 1 VIAL OF 400 MG OF CONC FOR SOLUTION FOR INFUSION
     Route: 042
     Dates: start: 20140813, end: 20141001
  3. CALCIUM TEVA [Concomitant]
     Indication: COLON CANCER RECURRENT
     Dosage: 5G/100 ML SOLUTION FOR INFUSION 1 VIAL OF 100 ML
     Route: 042
     Dates: start: 20140716, end: 20141001
  4. FLUOROURACIL. [Concomitant]
     Active Substance: FLUOROURACIL
     Indication: COLON CANCER RECURRENT
     Dosage: 8 MG/2 ML SOLUTION FOR INJECTION AMPOULE OF 2
     Route: 042
     Dates: start: 20140716, end: 20141001
  5. DECADRON [Concomitant]
     Active Substance: DEXAMETHASONE
     Route: 042
     Dates: start: 20140716, end: 20141001

REACTIONS (1)
  - Abdominal distension [Recovering/Resolving]

NARRATIVE: CASE EVENT DATE: 20141002
